FAERS Safety Report 6883440-0 (Version None)
Quarter: 2010Q3

REPORT INFORMATION
  Report Type: 
  Country: None (occurrence: None)
  Receive Date: 20100729
  Receipt Date: 20100722
  Transmission Date: 20110219
  Serious: Yes (Other)
  Sender: FDA-Public Use
  Company Number: US-SANOFI-AVENTIS-2010SA032822

PATIENT
  Age: 83 Year
  Sex: Female
  Weight: 58 kg

DRUGS (7)
  1. LANTUS [Suspect]
     Indication: TYPE 2 DIABETES MELLITUS
     Dosage: DOSE:20 UNIT(S)
     Route: 058
     Dates: start: 20000101
  2. LANTUS [Suspect]
     Route: 058
     Dates: start: 20000101
  3. OPTICLICK [Suspect]
     Indication: TYPE 2 DIABETES MELLITUS
  4. NOVOLOG [Concomitant]
  5. BENICAR [Concomitant]
  6. VERELAN [Concomitant]
  7. PRAVACHOL [Concomitant]

REACTIONS (1)
  - KNEE ARTHROPLASTY [None]
